FAERS Safety Report 12731352 (Version 1)
Quarter: 2016Q3

REPORT INFORMATION
  Report Type: Spontaneous
  Country: US (occurrence: US)
  Receive Date: 20160909
  Receipt Date: 20160909
  Transmission Date: 20161109
  Serious: Yes (Hospitalization, Disabling)
  Sender: FDA-Public Use
  Company Number: None

PATIENT
  Age: 58 Year
  Sex: Female
  Weight: 51.75 kg

DRUGS (4)
  1. DOXYCYCLINE HYCLATE. [Suspect]
     Active Substance: DOXYCYCLINE HYCLATE
     Indication: SINUSITIS
     Route: 048
     Dates: start: 20160904, end: 20160908
  2. TIROSINT [Concomitant]
     Active Substance: LEVOTHYROXINE SODIUM
  3. CUSTOMER [Concomitant]
  4. D 3 [Concomitant]

REACTIONS (12)
  - Arthralgia [None]
  - Piloerection [None]
  - Abdominal pain upper [None]
  - Faecaloma [None]
  - Contusion [None]
  - Headache [None]
  - Insomnia [None]
  - Myalgia [None]
  - Palpitations [None]
  - Chills [None]
  - Agitation [None]
  - Hyperhidrosis [None]

NARRATIVE: CASE EVENT DATE: 20160906
